FAERS Safety Report 6417989-1 (Version None)
Quarter: 2009Q4

REPORT INFORMATION
  Report Type: 
  Country: None (occurrence: None)
  Receive Date: 20091028
  Receipt Date: 20091022
  Transmission Date: 20100525
  Serious: Yes (Hospitalization, Other)
  Sender: FDA-Public Use
  Company Number: US-ABBOTT-09P-163-0604330-00

PATIENT
  Sex: Male
  Weight: 115.77 kg

DRUGS (6)
  1. LUPRON DEPOT [Suspect]
     Indication: PROSTATE CANCER
     Dosage: UNKNOWN DOSE
     Route: 030
     Dates: start: 19920101
  2. BICALUTAMIDE [Suspect]
     Indication: PROSTATE CANCER
     Route: 048
  3. CASODEX [Suspect]
     Indication: PROSTATE CANCER
     Route: 048
     Dates: end: 20090901
  4. ASPIRIN [Concomitant]
     Indication: DRUG USE FOR UNKNOWN INDICATION
  5. DIOVAN [Concomitant]
     Indication: HYPERTENSION
  6. ZOCOR [Concomitant]
     Indication: BLOOD CHOLESTEROL INCREASED

REACTIONS (5)
  - ARTHRALGIA [None]
  - BONE EROSION [None]
  - FEELING COLD [None]
  - GAIT DISTURBANCE [None]
  - MYALGIA [None]
